FAERS Safety Report 18367341 (Version 1)
Quarter: 2020Q4

REPORT INFORMATION
  Report Type: Spontaneous
  Country: US (occurrence: US)
  Receive Date: 20201009
  Receipt Date: 20201009
  Transmission Date: 20210114
  Serious: Yes (Hospitalization)
  Sender: FDA-Public Use
  Company Number: US-AMNEAL PHARMACEUTICALS-2020-AMRX-03076

PATIENT
  Sex: Male
  Weight: 8.6 kg

DRUGS (3)
  1. VIGABATRIN. [Suspect]
     Active Substance: VIGABATRIN
     Indication: EPILEPSY
     Dosage: 500 MILLIGRAM, 2 /DAY
     Route: 048
     Dates: start: 2020
  2. VIGABATRIN. [Suspect]
     Active Substance: VIGABATRIN
     Indication: STATUS EPILEPTICUS
  3. AFINITOR DISPERZ [Concomitant]
     Active Substance: EVEROLIMUS
     Indication: PRODUCT USED FOR UNKNOWN INDICATION
     Dosage: UNK
     Route: 065
     Dates: start: 2020

REACTIONS (1)
  - Adverse event [Unknown]

NARRATIVE: CASE EVENT DATE: 2020
